FAERS Safety Report 4756391-5 (Version None)
Quarter: 2005Q3

REPORT INFORMATION
  Report Type: 
  Country: None (occurrence: None)
  Receive Date: 20050830
  Receipt Date: 20050613
  Transmission Date: 20060218
  Serious: No
  Sender: FDA-Public Use
  Company Number: US-GLAXOSMITHKLINE-A0562436A

PATIENT
  Age: 66 Year
  Sex: Female

DRUGS (3)
  1. WELLBUTRIN XL [Suspect]
     Indication: DEPRESSION
     Dosage: 300MG PER DAY
     Route: 048
     Dates: start: 20050516
  2. QUESTRAN [Concomitant]
  3. DIAZIDE [Concomitant]

REACTIONS (5)
  - DIZZINESS [None]
  - ERYTHEMA [None]
  - HOT FLUSH [None]
  - HYPERHIDROSIS [None]
  - TINNITUS [None]
